FAERS Safety Report 10301286 (Version 1)
Quarter: 2014Q3

REPORT INFORMATION
  Report Type: Report from Study
  Country: US (occurrence: US)
  Receive Date: 20140714
  Receipt Date: 20140714
  Transmission Date: 20150326
  Serious: Yes (Hospitalization, Other)
  Sender: FDA-Public Use
  Company Number: US-JNJFOC-20140706590

PATIENT
  Age: 15 Year
  Sex: Female

DRUGS (1)
  1. NUCYNTA [Suspect]
     Active Substance: TAPENTADOL HYDROCHLORIDE
     Indication: PRODUCT USED FOR UNKNOWN INDICATION
     Dosage: 200 MG
     Route: 065

REACTIONS (7)
  - Heart rate increased [Recovering/Resolving]
  - Somnolence [Unknown]
  - Depressed level of consciousness [Unknown]
  - Hypertension [Recovering/Resolving]
  - Miosis [Unknown]
  - Respiratory rate increased [Recovered/Resolved]
  - Suicide attempt [Unknown]
